FAERS Safety Report 14848335 (Version 1)
Quarter: 2018Q2

REPORT INFORMATION
  Report Type: Report from Study
  Country: None (occurrence: DE)
  Receive Date: 20180504
  Receipt Date: 20180504
  Transmission Date: 20180711
  Serious: Yes (Hospitalization, Other)
  Sender: FDA-Public Use
  Company Number: DE-ABBVIE-18K-062-2339611-00

PATIENT
  Age: 37 Year
  Sex: Female
  Weight: 133 kg

DRUGS (9)
  1. NOVALGIN (CAFFEINE/PARACETAMOL/PROPYPHENAZONE) [Concomitant]
     Active Substance: ACETAMINOPHEN\CAFFEINE\PROPYPHENAZONE
     Dates: start: 2018
  2. OMEPRAZOL [Concomitant]
     Active Substance: OMEPRAZOLE
     Indication: PRODUCT USED FOR UNKNOWN INDICATION
  3. VENLAFAXIN [Concomitant]
     Active Substance: VENLAFAXINE HYDROCHLORIDE
     Indication: PRODUCT USED FOR UNKNOWN INDICATION
  4. HUMIRA [Suspect]
     Active Substance: ADALIMUMAB
     Indication: PSORIATIC ARTHROPATHY
     Route: 058
  5. NOVALGIN (CAFFEINE/PARACETAMOL/PROPYPHENAZONE) [Concomitant]
     Active Substance: ACETAMINOPHEN\CAFFEINE\PROPYPHENAZONE
     Indication: PRODUCT USED FOR UNKNOWN INDICATION
     Dosage: AS REQUIRED
  6. FRAGMIN [Concomitant]
     Active Substance: DALTEPARIN SODIUM
     Indication: THROMBOSIS PROPHYLAXIS
     Route: 058
     Dates: start: 2018
  7. IBUPROFEN. [Concomitant]
     Active Substance: IBUPROFEN
     Indication: PRODUCT USED FOR UNKNOWN INDICATION
     Dosage: AS REQUIRED
  8. IBUPROFEN. [Concomitant]
     Active Substance: IBUPROFEN
     Dates: start: 2018
  9. HUMIRA [Suspect]
     Active Substance: ADALIMUMAB
     Indication: PSORIASIS
     Route: 058
     Dates: start: 20170301, end: 20171127

REACTIONS (17)
  - Intervertebral disc protrusion [Recovered/Resolved]
  - Myelitis [Recovered/Resolved]
  - Nerve root compression [Recovering/Resolving]
  - Wound complication [Recovering/Resolving]
  - Wound complication [Recovering/Resolving]
  - Arthralgia [Unknown]
  - Intervertebral discitis [Recovered/Resolved]
  - Hypoaesthesia [Recovering/Resolving]
  - Pyrexia [Recovering/Resolving]
  - Streptococcal infection [Unknown]
  - Staphylococcal infection [Unknown]
  - Inflammatory marker increased [Recovering/Resolving]
  - Back pain [Recovered/Resolved]
  - Monoparesis [Recovering/Resolving]
  - Malaise [Recovering/Resolving]
  - Sciatica [Recovering/Resolving]
  - Subcutaneous abscess [Recovered/Resolved]

NARRATIVE: CASE EVENT DATE: 2017
